FAERS Safety Report 21634122 (Version 1)
Quarter: 2022Q4

REPORT INFORMATION
  Report Type: Spontaneous
  Country: JP (occurrence: JP)
  Receive Date: 20221123
  Receipt Date: 20221123
  Transmission Date: 20230112
  Serious: Yes (Hospitalization)
  Sender: FDA-Public Use
  Company Number: JP-Eisai-202200774_LEN-HCC_P_1

PATIENT
  Age: 77 Year
  Sex: Female

DRUGS (3)
  1. LENVATINIB [Suspect]
     Active Substance: LENVATINIB
     Indication: Hepatocellular carcinoma
     Route: 048
  2. LENVATINIB [Suspect]
     Active Substance: LENVATINIB
     Dosage: ALTERNATE-DAY ADMINISTRATION OF 4 MG AND 8 MG
     Route: 048
  3. LENVATINIB [Suspect]
     Active Substance: LENVATINIB
     Dosage: ALTERNATE-DAY ADMINISTRATION OF 4 MG AND 8 MG
     Route: 048

REACTIONS (8)
  - Thrombotic microangiopathy [Unknown]
  - Glomerular vascular disorder [Recovering/Resolving]
  - Renal tubular injury [Recovering/Resolving]
  - Pneumonia [Recovering/Resolving]
  - Acute kidney injury [Recovering/Resolving]
  - Hypertension [Recovering/Resolving]
  - Neovascularisation [Recovering/Resolving]
  - Proteinuria [Recovering/Resolving]
